FAERS Safety Report 4438042-2 (Version None)
Quarter: 2004Q3

REPORT INFORMATION
  Report Type: 
  Country: None (occurrence: None)
  Receive Date: 20040831
  Receipt Date: 20040511
  Transmission Date: 20050211
  Serious: Yes (Life-Threatening)
  Sender: FDA-Public Use
  Company Number: US-GLAXOSMITHKLINE-A0510413A

PATIENT
  Age: 16 Year
  Sex: Female
  Weight: 61.8 kg

DRUGS (2)
  1. WELLBUTRIN [Suspect]
     Indication: DEPRESSION
     Dosage: 150MG PER DAY
     Route: 048
     Dates: start: 20040406, end: 20040416
  2. NO CONCURRENT MEDICATION [Concomitant]

REACTIONS (1)
  - SYNCOPE [None]
